FAERS Safety Report 8244962-3 (Version None)
Quarter: 2012Q1

REPORT INFORMATION
  Report Type: 
  Country: None (occurrence: None)
  Receive Date: 20120329
  Receipt Date: 20111017
  Transmission Date: 20120608
  Serious: No
  Sender: FDA-Public Use
  Company Number: US-MYLANLABS-2011S1021744

PATIENT
  Age: 74 Year
  Sex: Female

DRUGS (3)
  1. BLACK COHOSH /01456805/ [Suspect]
     Indication: NIGHT SWEATS
     Route: 048
     Dates: start: 20111015
  2. LORTAB [Concomitant]
     Indication: PAIN
     Dosage: 10MG/500MG
  3. FENTANYL-100 [Suspect]
     Indication: PAIN
     Dosage: Q48H
     Route: 062
     Dates: start: 20090101

REACTIONS (4)
  - VULVOVAGINAL PRURITUS [None]
  - VULVOVAGINAL BURNING SENSATION [None]
  - NIGHT SWEATS [None]
  - PRURITUS GENERALISED [None]
